FAERS Safety Report 5443714-7 (Version None)
Quarter: 2007Q3

REPORT INFORMATION
  Report Type: 
  Country: None (occurrence: None)
  Receive Date: 20070731
  Receipt Date: 20070604
  Transmission Date: 20080115
  Serious: No
  Sender: FDA-Public Use
  Company Number: US200706000961

PATIENT
  Age: 54 Year
  Sex: Male

DRUGS (3)
  1. BYETTA [Suspect]
     Dosage: SEE IMAGE
     Route: 058
     Dates: start: 20070401, end: 20070501
  2. BYETTA [Suspect]
     Dosage: SEE IMAGE
     Route: 058
     Dates: start: 20070501
  3. GLUCOPHAGE [Concomitant]

REACTIONS (1)
  - BLOOD GLUCOSE INCREASED [None]
